FAERS Safety Report 18649435 (Version 1)
Quarter: 2020Q4

REPORT INFORMATION
  Report Type: Spontaneous
  Country: FR (occurrence: FR)
  Receive Date: 20201222
  Receipt Date: 20201222
  Transmission Date: 20210114
  Serious: Yes (Hospitalization)
  Sender: FDA-Public Use
  Company Number: FR-MYLANLABS-2020M1103629

PATIENT
  Age: 49 Year

DRUGS (1)
  1. BUPRENORPHINE. [Suspect]
     Active Substance: BUPRENORPHINE
     Indication: PRODUCT USED FOR UNKNOWN INDICATION
     Dosage: UNK
     Route: 045

REACTIONS (6)
  - Myocardial infarction [Recovered/Resolved]
  - Rhabdomyolysis [Recovered/Resolved]
  - Cerebrovascular accident [Recovered/Resolved]
  - Renal impairment [Recovered/Resolved]
  - Drug abuse [Recovered/Resolved]
  - Toxicity to various agents [Recovered/Resolved]
